FAERS Safety Report 5320929-X (Version None)
Quarter: 2007Q2

REPORT INFORMATION
  Report Type: 
  Country: None (occurrence: None)
  Receive Date: 20070504
  Receipt Date: 20070424
  Transmission Date: 20071010
  Serious: Yes (Death)
  Sender: FDA-Public Use
  Company Number: 2007SP007755

PATIENT
  Age: 46 Year
  Sex: Male
  Weight: 92 kg

DRUGS (2)
  1. PEGETRON (PEGINTERFERON ALFA-2B W/ RIBAVIRIN) (PEGYLATED INTERFERON AL [Suspect]
     Indication: HEPATITIS C
     Dosage: SEE IMAGE
     Route: 058
  2. REMICADE [Suspect]
     Indication: DRUG USE FOR UNKNOWN INDICATION

REACTIONS (1)
  - DEATH [None]
